FAERS Safety Report 9547965 (Version 2)
Quarter: 2013Q3

REPORT INFORMATION
  Report Type: Spontaneous
  Country: US (occurrence: US)
  Receive Date: 20130924
  Receipt Date: 20130924
  Transmission Date: 20140515
  Serious: Yes (Death, Other)
  Sender: FDA-Public Use
  Company Number: US-NAPPMUNDI-USA-2012-0082613

PATIENT
  Age: 21 Year
  Sex: Male
  Weight: 59.41 kg

DRUGS (14)
  1. MORPHINE SULFATE (SIMILAR TO NDA 19-516) [Suspect]
     Indication: PRODUCT USED FOR UNKNOWN INDICATION
  2. HYDROMORPHONE HCL (SIMILAR TO 19-892) [Suspect]
     Indication: PRODUCT USED FOR UNKNOWN INDICATION
  3. CHLORDIAZEPOXIDE [Suspect]
     Indication: PRODUCT USED FOR UNKNOWN INDICATION
  4. NORDIAZEPAM [Suspect]
     Indication: PRODUCT USED FOR UNKNOWN INDICATION
  5. COCAINE [Suspect]
     Indication: DRUG ABUSE
  6. DIPHENHYDRAMINE [Suspect]
     Indication: PRODUCT USED FOR UNKNOWN INDICATION
  7. HEROIN [Suspect]
     Indication: PRODUCT USED FOR UNKNOWN INDICATION
  8. CODEINE [Suspect]
     Indication: PRODUCT USED FOR UNKNOWN INDICATION
  9. HYDROCODONE /00060002/ [Suspect]
     Indication: PRODUCT USED FOR UNKNOWN INDICATION
  10. MARIJUANA [Suspect]
     Indication: PRODUCT USED FOR UNKNOWN INDICATION
  11. OXAZEPAM [Suspect]
     Indication: PRODUCT USED FOR UNKNOWN INDICATION
  12. ACETAMINOPHEN [Concomitant]
     Indication: PRODUCT USED FOR UNKNOWN INDICATION
  13. NICOTINE [Concomitant]
     Indication: PRODUCT USED FOR UNKNOWN INDICATION
  14. CAFFEINE [Concomitant]
     Indication: PRODUCT USED FOR UNKNOWN INDICATION

REACTIONS (2)
  - Accidental overdose [Fatal]
  - Substance abuse [Unknown]
